FAERS Safety Report 25697903 (Version 1)
Quarter: 2025Q3

REPORT INFORMATION
  Report Type: Spontaneous
  Country: US (occurrence: US)
  Receive Date: 20250819
  Receipt Date: 20250819
  Transmission Date: 20251021
  Serious: No
  Sender: ROCHE
  Company Number: US-ROCHE-10000363195

PATIENT
  Age: 4 Year
  Sex: Male

DRUGS (2)
  1. HEMLIBRA [Suspect]
     Active Substance: EMICIZUMAB-KXWH
     Indication: Factor VIII deficiency
     Dosage: FORM STRENGTH: 60MG/0.4ML
     Route: 058
     Dates: start: 202309
  2. AMINOCAPROIC ACID ORAL SOLN [Concomitant]
     Route: 048

REACTIONS (2)
  - Fall [Unknown]
  - Chest injury [Unknown]

NARRATIVE: CASE EVENT DATE: 20250711
